FAERS Safety Report 5638746-X (Version None)
Quarter: 2008Q1

REPORT INFORMATION
  Report Type: 
  Country: None (occurrence: None)
  Receive Date: 20080226
  Receipt Date: 20080221
  Transmission Date: 20080703
  Serious: Yes (Life-Threatening, Hospitalization)
  Sender: FDA-Public Use
  Company Number: GB-JNJFOC-20080205059

PATIENT
  Sex: Female

DRUGS (5)
  1. IBUPROFEN [Suspect]
     Indication: DRUG USE FOR UNKNOWN INDICATION
     Route: 048
  2. ALENDRONIC ACID [Concomitant]
     Route: 048
  3. CALCICHEW D3 [Concomitant]
     Route: 048
  4. ALBUTEROL [Concomitant]
     Route: 055
  5. SYMBICORT [Concomitant]
     Route: 055

REACTIONS (1)
  - DYSPNOEA [None]
